FAERS Safety Report 17490342 (Version 1)
Quarter: 2020Q1

REPORT INFORMATION
  Report Type: Spontaneous
  Country: US (occurrence: US)
  Receive Date: 20200303
  Receipt Date: 20200303
  Transmission Date: 20200409
  Serious: No
  Sender: FDA-Public Use
  Company Number: US-AKORN PHARMACEUTICALS-2019AKN00488

PATIENT
  Age: 17 Year
  Sex: Male

DRUGS (3)
  1. MYORISAN [Suspect]
     Active Substance: ISOTRETINOIN
     Indication: ACNE CYSTIC
     Dosage: UNK
     Dates: start: 20181105, end: 201901
  2. MYORISAN [Suspect]
     Active Substance: ISOTRETINOIN
     Indication: ACNE CYSTIC
     Dosage: 30 MG, 2X/DAY
     Route: 048
     Dates: start: 20181204, end: 201901
  3. MYORISAN [Suspect]
     Active Substance: ISOTRETINOIN
     Dosage: 30 MG, 1X/DAY
     Route: 048
     Dates: start: 20190125, end: 201902

REACTIONS (5)
  - Eye irritation [Recovered/Resolved]
  - Off label use [Recovered/Resolved]
  - Dry eye [Recovered/Resolved]
  - Eyelid irritation [Recovered/Resolved]
  - Eyelid skin dryness [Recovered/Resolved]

NARRATIVE: CASE EVENT DATE: 201901
